FAERS Safety Report 24201097 (Version 2)
Quarter: 2024Q3

REPORT INFORMATION
  Report Type: Report from Study
  Country: US (occurrence: US)
  Receive Date: 20240812
  Receipt Date: 20240926
  Transmission Date: 20241017
  Serious: Yes (Hospitalization, Other)
  Sender: ABBVIE
  Company Number: US-ALLERGAN-2232420US

PATIENT
  Age: 68 Year
  Sex: Female

DRUGS (6)
  1. LINZESS [Suspect]
     Active Substance: LINACLOTIDE
     Indication: Constipation
     Dosage: DAILY DOSE: 145.0 ?G?FORM STRENGTH: 145 MICROGRAM
     Route: 048
     Dates: start: 202206, end: 20220626
  2. LINZESS [Suspect]
     Active Substance: LINACLOTIDE
     Indication: Constipation
     Dosage: DAILY DOSE: 290.0 ?G, TOTAL: 3190.0 ?G?FORM STRENGTH: 75 MICROGRAM
     Route: 048
     Dates: start: 20220624, end: 20220704
  3. LINZESS [Suspect]
     Active Substance: LINACLOTIDE
     Indication: Constipation
     Dosage: FORM STRENGTH: 290 MICROGRAM
     Route: 048
     Dates: start: 20220705
  4. LINZESS [Suspect]
     Active Substance: LINACLOTIDE
     Indication: Constipation
     Route: 048
     Dates: start: 20210101
  5. MODERNA COVID-19 VACCINE [Suspect]
     Active Substance: ELASOMERAN
     Indication: COVID-19 immunisation
     Dosage: TIME INTERVAL: AS NECESSARY: MODERNA 5TH DOSE
     Route: 030
     Dates: start: 20220927, end: 20220927
  6. LEVAQUIN [Concomitant]
     Active Substance: LEVOFLOXACIN
     Indication: Pneumonia
     Dosage: DAILY DOSE: 7.5 MG, TOTAL: 52.5 MG
     Route: 048
     Dates: start: 20221011

REACTIONS (5)
  - Metastatic neoplasm [Not Recovered/Not Resolved]
  - Pneumonia [Recovering/Resolving]
  - Dyspnoea [Recovering/Resolving]
  - Anxiety [Not Recovered/Not Resolved]
  - Gastrointestinal motility disorder [Recovered/Resolved]

NARRATIVE: CASE EVENT DATE: 20220401
